FAERS Safety Report 8515704 (Version 3)
Quarter: 2013Q1

REPORT INFORMATION
  Report Type: Spontaneous
  Country: US (occurrence: US)
  Receive Date: 20120417
  Receipt Date: 20130318
  Transmission Date: 20140127
  Serious: Yes (Hospitalization)
  Sender: FDA-Public Use
  Company Number: US-PFIZER INC-2012091895

PATIENT
  Age: 64 Year
  Sex: Female
  Weight: 127 kg

DRUGS (25)
  1. PROTONIX [Suspect]
     Indication: GASTROOESOPHAGEAL REFLUX DISEASE
     Dosage: 40 MG, 1X/DAY
     Route: 048
     Dates: end: 201202
  2. PROTONIX [Suspect]
     Dosage: 40 MG, 1X/DAY
     Dates: end: 201301
  3. TOVIAZ [Concomitant]
     Dosage: UNK
  4. BUSPAR [Concomitant]
     Indication: ANXIETY
     Dosage: 10 MG, UNK
  5. BUSPAR [Concomitant]
     Indication: DEPRESSION
  6. SEROQUEL [Concomitant]
     Indication: ANXIETY
     Dosage: 200 MG, 2X/DAY
  7. SEROQUEL [Concomitant]
     Indication: DEPRESSION
  8. ESTROGEL [Concomitant]
     Dosage: UNK
  9. DULERA [Concomitant]
     Dosage: UNK
  10. COMBIVENT [Concomitant]
     Dosage: UNK
  11. CLOPIDOGREL [Concomitant]
     Dosage: 75 MG, UNK
  12. METOPROLOL TARTRATE [Concomitant]
     Dosage: UNK
  13. ISOSORBIDE MONONITRATE [Concomitant]
     Dosage: UNK
  14. GABAPENTIN [Concomitant]
     Dosage: 300MG IN THE MORNING AND 600MG AT BEDTIME
     Route: 048
  15. K-DUR [Concomitant]
     Dosage: 10 MEQ, 3X/DAY
  16. KLONOPIN [Concomitant]
     Dosage: 0.5MG THREE TIMES IN THE DAY TIME AND 1.5MG AT BEDTIME
  17. LEVOTHYROXINE [Concomitant]
     Dosage: 0.15 MG, UNK
  18. NIFEDIPINE [Concomitant]
     Dosage: 30 MG, UNK
  19. LOVASTATIN [Concomitant]
     Dosage: 40 MG, 1X/DAY
  20. WELLBUTRIN [Concomitant]
     Dosage: 15 MG, 2X/DAY
  21. FUROSEMIDE [Concomitant]
     Indication: POLYURIA
     Dosage: UNK
  22. NITROSTAT [Concomitant]
     Dosage: 0.4 MG, AS NEEDED
  23. ZAROXOLYN [Concomitant]
     Dosage: 2.5 MG, WEEKLY
  24. TRAMADOL [Concomitant]
     Dosage: 50 MG, AS NEEDED
  25. PROMETHAZINE [Concomitant]
     Indication: NAUSEA
     Dosage: 25 MG, UNK

REACTIONS (4)
  - Limb injury [Recovering/Resolving]
  - Fall [Recovering/Resolving]
  - Blood cholesterol increased [Unknown]
  - Dyspepsia [Recovered/Resolved]
